FAERS Safety Report 6399948-0 (Version None)
Quarter: 2009Q4

REPORT INFORMATION
  Report Type: 
  Country: None (occurrence: None)
  Receive Date: 20091014
  Receipt Date: 20090930
  Transmission Date: 20100525
  Serious: Yes (Hospitalization)
  Sender: FDA-Public Use
  Company Number: CA-PFIZER INC-2009282645

PATIENT
  Age: 74 Year

DRUGS (2)
  1. ZITHROMAX [Suspect]
     Dosage: UNK
     Dates: start: 20080301
  2. ZITHROMAX [Suspect]
     Dosage: UNK
     Dates: start: 20080501

REACTIONS (1)
  - OEDEMA [None]
